FAERS Safety Report 9433225 (Version 1)
Quarter: 2013Q3

REPORT INFORMATION
  Report Type: Spontaneous
  Country: US (occurrence: US)
  Receive Date: 20130731
  Receipt Date: 20130731
  Transmission Date: 20140515
  Serious: Yes (Hospitalization)
  Sender: FDA-Public Use
  Company Number: US-TEVA-418522USA

PATIENT
  Sex: Female

DRUGS (4)
  1. PROAIR HFA [Suspect]
     Indication: MULTIPLE SCLEROSIS
  2. COPAXONE [Suspect]
  3. UNKNOWN BIRTH CONTROL PILLS [Concomitant]
  4. ORAP [Concomitant]

REACTIONS (4)
  - Hemiparesis [Unknown]
  - Nausea [Unknown]
  - Vomiting [Unknown]
  - Pregnancy [Unknown]
